FAERS Safety Report 9511319 (Version 3)
Quarter: 2013Q4

REPORT INFORMATION
  Report Type: Report from Study
  Country: ZA (occurrence: ZA)
  Receive Date: 20130910
  Receipt Date: 20131017
  Transmission Date: 20140711
  Serious: Yes (Hospitalization)
  Sender: FDA-Public Use
  Company Number: ZA-JNJFOC-20130806917

PATIENT
  Age: 24 Year
  Sex: Female
  Weight: 58 kg

DRUGS (12)
  1. TMC207 [Suspect]
     Indication: TUBERCULOSIS
     Route: 048
     Dates: start: 20130517, end: 20130812
  2. TMC207 [Suspect]
     Indication: TUBERCULOSIS
     Route: 048
     Dates: start: 20130919
  3. TMC207 [Suspect]
     Indication: TUBERCULOSIS
     Route: 048
     Dates: start: 20130816, end: 20130829
  4. ELTROXIN [Concomitant]
     Indication: HYPOTHYROIDISM
     Route: 048
     Dates: start: 20130703
  5. PYRIDOXINE [Concomitant]
     Indication: PROPHYLAXIS
     Route: 048
     Dates: start: 20130510
  6. IBUPROFEN [Concomitant]
     Indication: PAIN
     Route: 048
     Dates: start: 20130618
  7. NEVIRAPINE [Concomitant]
     Indication: HIV INFECTION
     Route: 065
     Dates: start: 20130426, end: 20130916
  8. BACTRIM [Concomitant]
     Indication: PROPHYLAXIS AGAINST HIV INFECTION
     Route: 048
     Dates: start: 2012
  9. ETHIONAMIDE [Concomitant]
     Indication: TUBERCULOSIS
     Route: 048
     Dates: start: 20130510, end: 20130812
  10. TERIZIDONE [Concomitant]
     Indication: TUBERCULOSIS
     Route: 048
     Dates: start: 20130510, end: 20130812
  11. AZT [Concomitant]
     Indication: HIV INFECTION
     Route: 048
     Dates: start: 20130305
  12. 3TC [Concomitant]
     Indication: HIV INFECTION
     Route: 048
     Dates: start: 20130305

REACTIONS (1)
  - Psychotic disorder [Recovering/Resolving]
